FAERS Safety Report 16987170 (Version 17)
Quarter: 2022Q3

REPORT INFORMATION
  Report Type: Report from Study
  Country: FR (occurrence: FR)
  Receive Date: 20191104
  Receipt Date: 20220912
  Transmission Date: 20221027
  Serious: Yes (Other)
  Sender: FDA-Public Use
  Company Number: FR-ABBVIE-19K-056-2640262-00

PATIENT
  Age: 77 Year
  Sex: Male
  Weight: 67 kg

DRUGS (22)
  1. VENETOCLAX [Suspect]
     Active Substance: VENETOCLAX
     Indication: Chronic lymphocytic leukaemia
     Route: 048
     Dates: start: 20181015, end: 20181021
  2. VENETOCLAX [Suspect]
     Active Substance: VENETOCLAX
     Route: 048
     Dates: start: 20181022, end: 20181028
  3. VENETOCLAX [Suspect]
     Active Substance: VENETOCLAX
     Route: 048
     Dates: start: 20181029, end: 20181104
  4. VENETOCLAX [Suspect]
     Active Substance: VENETOCLAX
     Route: 048
     Dates: start: 20181105, end: 20181111
  5. VENETOCLAX [Suspect]
     Active Substance: VENETOCLAX
     Route: 048
     Dates: start: 20181112
  6. VENETOCLAX [Suspect]
     Active Substance: VENETOCLAX
     Route: 048
     Dates: start: 20190627
  7. SMECTA [Concomitant]
     Active Substance: MONTMORILLONITE
     Indication: Product used for unknown indication
     Dates: start: 20181010, end: 201811
  8. SMECTA [Concomitant]
     Active Substance: MONTMORILLONITE
     Dates: start: 20190313, end: 20190315
  9. FASTURTEC [Concomitant]
     Active Substance: RASBURICASE
     Indication: Prophylaxis
     Dates: start: 20181015, end: 20181015
  10. FASTURTEC [Concomitant]
     Active Substance: RASBURICASE
     Indication: Prophylaxis
  11. BACTRIM [Concomitant]
     Active Substance: SULFAMETHOXAZOLE\TRIMETHOPRIM
     Indication: Infection prophylaxis
     Dates: start: 20180322
  12. VALACYCLOVIR HYDROCHLORIDE [Concomitant]
     Active Substance: VALACYCLOVIR HYDROCHLORIDE
     Indication: Infection prophylaxis
     Dates: start: 20180322
  13. LEUCOVORIN CALCIUM [Concomitant]
     Active Substance: LEUCOVORIN CALCIUM
     Indication: Anaemia prophylaxis
     Dates: start: 20180322
  14. TRAMADOL [Concomitant]
     Active Substance: TRAMADOL
     Indication: Pain
     Dosage: IF NEEDED
     Dates: start: 20180928, end: 20181023
  15. METHYLPREDNISOLONE [Concomitant]
     Active Substance: METHYLPREDNISOLONE
     Indication: Chronic lymphocytic leukaemia
     Dates: start: 20181008, end: 20181019
  16. PREDNISONE [Concomitant]
     Active Substance: PREDNISONE
     Indication: Chronic lymphocytic leukaemia
     Dates: start: 20181020, end: 20181021
  17. DEXERYL [Concomitant]
     Indication: Dry skin
     Dates: start: 20181119, end: 201811
  18. LEUCOVORIN CALCIUM [Concomitant]
     Active Substance: LEUCOVORIN CALCIUM
     Indication: Infection prophylaxis
     Dates: start: 20181022
  19. HIZENTRA [Concomitant]
     Active Substance: HUMAN IMMUNOGLOBULIN G
     Indication: Hypogammaglobulinaemia
     Dates: start: 20160712, end: 201809
  20. HIZENTRA [Concomitant]
     Active Substance: HUMAN IMMUNOGLOBULIN G
  21. CEFTRIAXONE SODIUM [Concomitant]
     Active Substance: CEFTRIAXONE SODIUM
     Indication: Bronchitis
     Dates: start: 2020, end: 20201225
  22. LEVOTHYROXINE [Concomitant]
     Active Substance: LEVOTHYROXINE
     Indication: Hypothyroidism
     Dates: start: 20210212

REACTIONS (23)
  - Basal cell carcinoma [Recovered/Resolved]
  - Basal cell carcinoma [Recovered/Resolved]
  - Dry skin [Recovered/Resolved]
  - Breast pain [Recovered/Resolved]
  - Subcutaneous haematoma [Recovered/Resolved]
  - Stasis dermatitis [Recovered/Resolved]
  - Bronchitis [Recovered/Resolved]
  - Back pain [Not Recovered/Not Resolved]
  - Renal colic [Recovered/Resolved]
  - Somnolence [Not Recovered/Not Resolved]
  - Fungal skin infection [Recovered/Resolved]
  - Lymphocytosis [Recovered/Resolved]
  - Hypogammaglobulinaemia [Not Recovered/Not Resolved]
  - Hypothyroidism [Not Recovered/Not Resolved]
  - General physical health deterioration [Not Recovered/Not Resolved]
  - Subcutaneous haematoma [Recovered/Resolved]
  - Nocturia [Not Recovered/Not Resolved]
  - Bronchitis [Not Recovered/Not Resolved]
  - Dyspnoea [Not Recovered/Not Resolved]
  - Headache [Not Recovered/Not Resolved]
  - Hyperkalaemia [Recovered/Resolved]
  - Diarrhoea [Recovered/Resolved]
  - Fatigue [Recovered/Resolved]

NARRATIVE: CASE EVENT DATE: 20181016
